FAERS Safety Report 7113810-7 (Version None)
Quarter: 2010Q4

REPORT INFORMATION
  Report Type: 
  Country: None (occurrence: None)
  Receive Date: 20101119
  Receipt Date: 20101111
  Transmission Date: 20110411
  Serious: Yes (Hospitalization, Other)
  Sender: FDA-Public Use
  Company Number: US-TEVA-253052USA

PATIENT
  Sex: Female

DRUGS (3)
  1. ADENOSINE [Suspect]
     Indication: CARDIAC ARREST
  2. AMLODIPINE [Concomitant]
     Route: 048
  3. CITALOPRAM HYDROBROMIDE [Concomitant]
     Route: 048

REACTIONS (9)
  - ANAPHYLACTIC REACTION [None]
  - BREATH SOUNDS ABNORMAL [None]
  - CHEST PAIN [None]
  - DYSPNOEA [None]
  - FLUSHING [None]
  - HEART RATE INCREASED [None]
  - RESPIRATORY DISTRESS [None]
  - RESPIRATORY GAS EXCHANGE DISORDER [None]
  - WHEEZING [None]
